FAERS Safety Report 8029389-1 (Version None)
Quarter: 2012Q1

REPORT INFORMATION
  Report Type: 
  Country: None (occurrence: None)
  Receive Date: 20120106
  Receipt Date: 20120103
  Transmission Date: 20120608
  Serious: Yes (Life-Threatening, Hospitalization)
  Sender: FDA-Public Use
  Company Number: FR-ROCHE-1027630

PATIENT
  Sex: Male
  Weight: 80 kg

DRUGS (4)
  1. RAMIPRIL [Concomitant]
     Dates: start: 20070616
  2. MYCOPHENOLATE MOFETIL (CELLCEPT) [Suspect]
     Indication: RENAL TRANSPLANT
     Route: 048
  3. ATORVASTATIN CALCIUM [Concomitant]
     Dates: start: 20071115
  4. ULTRALEVURE [Concomitant]
     Dates: start: 20070822

REACTIONS (2)
  - PNEUMONIA [None]
  - ANGIOEDEMA [None]
